FAERS Safety Report 8354469-0 (Version None)
Quarter: 2012Q2

REPORT INFORMATION
  Report Type: 
  Country: None (occurrence: None)
  Receive Date: 20120511
  Receipt Date: 20120501
  Transmission Date: 20120825
  Serious: Yes (Hospitalization)
  Sender: FDA-Public Use
  Company Number: US-JNJFOC-20120502222

PATIENT
  Age: 3 Decade
  Sex: Male

DRUGS (2)
  1. REMICADE [Suspect]
     Indication: CROHN'S DISEASE
     Route: 042
     Dates: end: 20120101
  2. SOLU-MEDROL [Concomitant]
     Indication: PREMEDICATION
     Route: 065

REACTIONS (9)
  - HEART RATE INCREASED [None]
  - RETCHING [None]
  - CHEST DISCOMFORT [None]
  - VOMITING [None]
  - FEELING ABNORMAL [None]
  - ARTHRALGIA [None]
  - ANXIETY [None]
  - INFUSION RELATED REACTION [None]
  - BURNING SENSATION [None]
